FAERS Safety Report 6975844-2 (Version None)
Quarter: 2010Q3

REPORT INFORMATION
  Report Type: 
  Country: None (occurrence: None)
  Receive Date: 20100910
  Receipt Date: 20090409
  Transmission Date: 20110219
  Serious: No
  Sender: FDA-Public Use
  Company Number: US-WYE-H08918909

PATIENT
  Sex: Female

DRUGS (9)
  1. PRISTIQ [Suspect]
     Indication: DEPRESSION
     Route: 048
     Dates: start: 20090326, end: 20090407
  2. SYNTHROID [Concomitant]
  3. EXCEDRIN (MIGRAINE) [Concomitant]
  4. PREMPRO [Concomitant]
  5. SEREVENT [Concomitant]
  6. COMBIVENT [Concomitant]
  7. FOSAMAX [Concomitant]
  8. TRIAMTERENE AND HYDROCHLOROTHIAZIDE [Concomitant]
  9. AZMACORT [Concomitant]

REACTIONS (2)
  - DRUG HYPERSENSITIVITY [None]
  - RASH PRURITIC [None]
